FAERS Safety Report 6501285-8 (Version None)
Quarter: 2009Q4

REPORT INFORMATION
  Report Type: 
  Country: None (occurrence: None)
  Receive Date: 20091216
  Receipt Date: 20091211
  Transmission Date: 20100525
  Serious: Yes (Death, Hospitalization)
  Sender: FDA-Public Use
  Company Number: US-BAYER-200827776NA

PATIENT
  Age: 50 Year
  Sex: Male
  Weight: 84 kg

DRUGS (3)
  1. SORAFENIB [Suspect]
     Indication: BILE DUCT CANCER
     Dosage: TOTAL DAILY DOSE: 800 MG  UNIT DOSE: 200 MG
     Route: 048
     Dates: start: 20080613, end: 20080710
  2. CAPECITABINE [Suspect]
     Indication: BILE DUCT CANCER
     Dosage: DAY 1 AND DAY 15
     Route: 048
     Dates: start: 20080613, end: 20080710
  3. OXALIPLATIN [Suspect]
     Indication: BILE DUCT CANCER
     Dosage: DAY 1 AND DAY 15
     Route: 042
     Dates: start: 20080613, end: 20080710

REACTIONS (5)
  - DEATH [None]
  - HYPOTENSION [None]
  - HYPOXIA [None]
  - OEDEMA PERIPHERAL [None]
  - PNEUMONIA [None]
